FAERS Safety Report 7602803-9 (Version None)
Quarter: 2011Q3

REPORT INFORMATION
  Report Type: 
  Country: None (occurrence: None)
  Receive Date: 20110711
  Receipt Date: 20110711
  Transmission Date: 20111222
  Serious: Yes (Life-Threatening, Hospitalization)
  Sender: FDA-Public Use
  Company Number: None

PATIENT
  Age: 72 Year
  Sex: Female

DRUGS (2)
  1. LOVENOX [Suspect]
     Indication: KNEE ARTHROPLASTY
     Dosage: 40 MG  DAILY SQ
     Route: 058
     Dates: start: 20110401, end: 20110404
  2. LOVENOX [Suspect]
     Indication: THROMBOSIS PROPHYLAXIS
     Dosage: 40 MG  DAILY SQ
     Route: 058
     Dates: start: 20110401, end: 20110404

REACTIONS (5)
  - EROSIVE OESOPHAGITIS [None]
  - ANAEMIA [None]
  - HIATUS HERNIA [None]
  - DIZZINESS [None]
  - GASTRIC ULCER [None]
